FAERS Safety Report 7399436-9 (Version None)
Quarter: 2011Q2

REPORT INFORMATION
  Report Type: 
  Country: None (occurrence: None)
  Receive Date: 20110407
  Receipt Date: 20110325
  Transmission Date: 20111010
  Serious: Yes (Hospitalization)
  Sender: FDA-Public Use
  Company Number: PHFR2011IE02189

PATIENT
  Sex: Female

DRUGS (1)
  1. CLOZARIL [Suspect]
     Indication: SCHIZOPHRENIA
     Dosage: UNK MG
     Route: 048
     Dates: start: 20000120

REACTIONS (10)
  - WHITE BLOOD CELL COUNT INCREASED [None]
  - BRONCHOSPASM [None]
  - RESPIRATORY FAILURE [None]
  - MITRAL VALVE INCOMPETENCE [None]
  - NEUTROPHIL COUNT INCREASED [None]
  - SEPSIS [None]
  - PULMONARY HYPERTENSION [None]
  - EMPHYSEMA [None]
  - AGITATION [None]
  - CORONARY ARTERY DISEASE [None]
